FAERS Safety Report 4336413-6 (Version None)
Quarter: 2004Q2

REPORT INFORMATION
  Report Type: 
  Country: None (occurrence: None)
  Receive Date: 20040407
  Receipt Date: 20040330
  Transmission Date: 20050107
  Serious: Yes (Death)
  Sender: FDA-Public Use
  Company Number: K200400479

PATIENT
  Sex: Male

DRUGS (1)
  1. BREVITAL SODIUM INJ [Suspect]
     Indication: CARDIOVERSION

REACTIONS (2)
  - CONVULSION [None]
  - POST PROCEDURAL COMPLICATION [None]
